FAERS Safety Report 10569932 (Version 1)
Quarter: 2014Q4

REPORT INFORMATION
  Report Type: Spontaneous
  Country: US (occurrence: None)
  Receive Date: 20141105
  Receipt Date: 20141105
  Transmission Date: 20150529
  Serious: Yes (Other)
  Sender: FDA-Public Use
  Company Number: KAD201410-001353

PATIENT
  Sex: Female

DRUGS (2)
  1. RIBAVIRIN (RIBAVIRIN) [Suspect]
     Active Substance: RIBAVIRIN
  2. INTERFERON ALFACON-1 [Suspect]
     Active Substance: INTERFERON ALFACON-1

REACTIONS (3)
  - Weight decreased [None]
  - Surgery [None]
  - Headache [None]

NARRATIVE: CASE EVENT DATE: 2011
